FAERS Safety Report 4622438-X (Version None)
Quarter: 2005Q1

REPORT INFORMATION
  Report Type: 
  Country: None (occurrence: None)
  Receive Date: 20050325
  Receipt Date: 20050325
  Transmission Date: 20050727
  Serious: Yes (Death, Hospitalization)
  Sender: FDA-Public Use
  Company Number: None

PATIENT
  Sex: Female
  Weight: 5.2 kg

DRUGS (7)
  1. SYNAGIS [Suspect]
     Indication: PROPHYLAXIS
     Dosage: 79 MG IM X 1
     Route: 030
     Dates: start: 20050215
  2. SYNAGIS [Suspect]
     Indication: RESPIRATORY SYNCYTIAL VIRUS INFECTION
     Dosage: 79 MG IM X 1
     Route: 030
     Dates: start: 20050215
  3. SODIUM CHLORIDE [Concomitant]
  4. ALDACTAZIDE [Concomitant]
  5. COMBIVENT [Concomitant]
  6. PULMICORT [Concomitant]
  7. LASIX [Concomitant]

REACTIONS (5)
  - CYANOSIS [None]
  - LUNG DISORDER [None]
  - PULMONARY HAEMORRHAGE [None]
  - PULMONARY HYPERTENSION [None]
  - RESPIRATORY FAILURE [None]
